FAERS Safety Report 6546326-7 (Version None)
Quarter: 2010Q1

REPORT INFORMATION
  Report Type: 
  Country: None (occurrence: None)
  Receive Date: 20100122
  Receipt Date: 20100119
  Transmission Date: 20100710
  Serious: Yes (Death)
  Sender: FDA-Public Use
  Company Number: US-ROCHE-680601

PATIENT
  Sex: Male

DRUGS (1)
  1. CAPECITABINE [Suspect]
     Dosage: BY MOUTH
     Route: 048
     Dates: start: 20091001, end: 20091001

REACTIONS (1)
  - DEATH [None]
